FAERS Safety Report 25216747 (Version 2)
Quarter: 2025Q2

REPORT INFORMATION
  Report Type: Spontaneous
  Country: US (occurrence: US)
  Receive Date: 20250419
  Receipt Date: 20250516
  Transmission Date: 20250717
  Serious: No
  Sender: APOTEX
  Company Number: US-APOTEX-2025AP004239

PATIENT
  Sex: Male

DRUGS (1)
  1. FLUTICASONE PROPIONATE [Suspect]
     Active Substance: FLUTICASONE PROPIONATE
     Indication: Product used for unknown indication
     Dosage: 2 DOSAGE FORM, BID
     Route: 045
     Dates: start: 2025

REACTIONS (3)
  - Product dose omission issue [Unknown]
  - Product delivery mechanism issue [Unknown]
  - Inappropriate schedule of product administration [Unknown]

NARRATIVE: CASE EVENT DATE: 20250101
